FAERS Safety Report 16169100 (Version 3)
Quarter: 2019Q2

REPORT INFORMATION
  Report Type: Spontaneous
  Country: JP (occurrence: JP)
  Receive Date: 20190408
  Receipt Date: 20190528
  Transmission Date: 20190711
  Serious: Yes (Hospitalization)
  Sender: FDA-Public Use
  Company Number: JP-DSJP-DSJ-2019-112235

PATIENT

DRUGS (9)
  1. PREDNISOLONE. [Suspect]
     Active Substance: PREDNISOLONE
     Dosage: 10MG/DAY
     Route: 065
  2. OLMETEC OD [Suspect]
     Active Substance: OLMESARTAN MEDOXOMIL
     Indication: HYPERTENSION
     Dosage: 40MG/DAY
     Route: 065
  3. ARTIST [Suspect]
     Active Substance: CARVEDILOL
     Indication: PRODUCT USED FOR UNKNOWN INDICATION
     Dosage: 20MG/DAY
     Route: 065
  4. PITAVASTATIN                       /06470002/ [Suspect]
     Active Substance: PITAVASTATIN CALCIUM
     Dosage: 1MG/DAY
     Route: 065
  5. DIPYRIDAMOLE. [Suspect]
     Active Substance: DIPYRIDAMOLE
     Dosage: 300MG/DAY
     Route: 065
  6. AZOSEMIDE [Suspect]
     Active Substance: AZOSEMIDE
     Dosage: 30MG/DAY
     Route: 065
  7. NIFEDIPINE. [Suspect]
     Active Substance: NIFEDIPINE
     Dosage: 20MG/DAY
     Route: 065
  8. RABEPRAZOLE                        /01417202/ [Suspect]
     Active Substance: RABEPRAZOLE SODIUM
     Dosage: 10MG/DAY
     Route: 065
  9. ALENDRONATE [Suspect]
     Active Substance: ALENDRONATE SODIUM
     Dosage: 35MG/DAY
     Route: 065

REACTIONS (2)
  - Autoimmune nephritis [Recovered/Resolved]
  - Mitral valve prolapse [Recovered/Resolved]
